FAERS Safety Report 22926214 (Version 2)
Quarter: 2024Q3

REPORT INFORMATION
  Report Type: Spontaneous
  Country: US (occurrence: US)
  Receive Date: 20230909
  Receipt Date: 20240703
  Transmission Date: 20241016
  Serious: Yes (Hospitalization, Other)
  Sender: AUROBINDO
  Company Number: US-MLMSERVICE-20230824-4503981-1

PATIENT
  Age: 72 Year
  Sex: Female

DRUGS (1)
  1. METRONIDAZOLE [Suspect]
     Active Substance: METRONIDAZOLE
     Indication: Clostridium difficile colitis
     Dosage: UNK
     Route: 065

REACTIONS (1)
  - Pancytopenia [Recovered/Resolved]
